FAERS Safety Report 4954030-1 (Version None)
Quarter: 2006Q1

REPORT INFORMATION
  Report Type: 
  Country: None (occurrence: None)
  Receive Date: 20060321
  Receipt Date: 20060316
  Transmission Date: 20060701
  Serious: Yes (Hospitalization)
  Sender: FDA-Public Use
  Company Number: HQWYE357016MAR06

PATIENT
  Age: 63 Year
  Sex: Female

DRUGS (18)
  1. PANTOPRAZOLE SODIUM [Suspect]
     Indication: DYSPEPSIA
     Dosage: SEE IMAGE
     Route: 048
     Dates: start: 20031001, end: 20040209
  2. PANTOPRAZOLE SODIUM [Suspect]
     Indication: DYSPEPSIA
     Dosage: SEE IMAGE
     Route: 048
     Dates: start: 20040210
  3. ALTACE [Concomitant]
  4. SECTRAL [Concomitant]
  5. BISOPROLOL FUMARATE [Concomitant]
  6. GLUCOPHAGE [Concomitant]
  7. LIPIDIL [Concomitant]
  8. DESYREL [Concomitant]
  9. ATIVAN [Concomitant]
  10. NITRO-DUR [Concomitant]
  11. ASPIRIN [Concomitant]
  12. NASONEX [Concomitant]
  13. FERROUS SULFATE TAB [Concomitant]
  14. GLUCOSAMINE (GLUCOSAMINE) [Concomitant]
  15. ECHINACEA (ECHINACEA EXTRACT) [Concomitant]
  16. VITAMIN D [Concomitant]
  17. ACETAMINOPHEN [Concomitant]
  18. SUDAFED 12 HOUR [Concomitant]

REACTIONS (13)
  - ASTHENIA [None]
  - DYSPNOEA [None]
  - HAEMATURIA [None]
  - HAEMOGLOBIN DECREASED [None]
  - LEUKOCYTURIA [None]
  - NAUSEA [None]
  - NEPHRITIS INTERSTITIAL [None]
  - NOCTURIA [None]
  - PROTEINURIA [None]
  - RENAL FAILURE ACUTE [None]
  - RENAL TUBULAR NECROSIS [None]
  - VOMITING [None]
  - WEIGHT DECREASED [None]
